FAERS Safety Report 11317764 (Version 1)
Quarter: 2015Q3

REPORT INFORMATION
  Report Type: Spontaneous
  Country: FR (occurrence: FR)
  Receive Date: 20150728
  Receipt Date: 20150728
  Transmission Date: 20151125
  Serious: Yes (Other)
  Sender: FDA-Public Use
  Company Number: FR-ASTRAZENECA-2015SE72285

PATIENT
  Age: 52 Year
  Sex: Male

DRUGS (5)
  1. ALDACTONE [Concomitant]
     Active Substance: SPIRONOLACTONE
     Indication: HYPERTENSION
  2. INEXIUM [Suspect]
     Active Substance: ESOMEPRAZOLE
     Indication: VARICES OESOPHAGEAL
     Route: 048
  3. DUPHALAC [Concomitant]
     Active Substance: LACTULOSE
  4. VIRLIX [Concomitant]
     Active Substance: CETIRIZINE HYDROCHLORIDE
     Indication: HYPERSENSITIVITY
  5. CORTANCYL [Concomitant]
     Active Substance: PREDNISONE
     Indication: OROPHARYNGEAL PAIN

REACTIONS (3)
  - Pain in extremity [Not Recovered/Not Resolved]
  - Osteonecrosis [Not Recovered/Not Resolved]
  - Back pain [Not Recovered/Not Resolved]
